FAERS Safety Report 5401913-4 (Version None)
Quarter: 2007Q3

REPORT INFORMATION
  Report Type: 
  Country: None (occurrence: None)
  Receive Date: 20070726
  Receipt Date: 20070711
  Transmission Date: 20080115
  Serious: Yes (Other)
  Sender: FDA-Public Use
  Company Number: TUK2007A00068

PATIENT
  Age: 80 Year
  Sex: Female

DRUGS (3)
  1. ACTOS [Suspect]
     Dosage: 30 MG
     Dates: start: 20070518
  2. METFORMIN HCL [Concomitant]
  3. GLICLAZIDE (GLICLAZIDE) [Concomitant]

REACTIONS (1)
  - VISUAL DISTURBANCE [None]
